FAERS Safety Report 4871828-9 (Version None)
Quarter: 2006Q1

REPORT INFORMATION
  Report Type: 
  Country: None (occurrence: None)
  Receive Date: 20060104
  Receipt Date: 20051205
  Transmission Date: 20060701
  Serious: Yes (Hospitalization)
  Sender: FDA-Public Use
  Company Number: FR-MERCK-0512FRA00013

PATIENT
  Age: 40 Year
  Sex: Male
  Weight: 65 kg

DRUGS (16)
  1. TACROLIMUS [Concomitant]
     Indication: PROPHYLAXIS AGAINST TRANSPLANT REJECTION
     Route: 048
     Dates: start: 20051026
  2. DEXCHLORPHENIRAMINE MALEATE [Concomitant]
     Route: 051
     Dates: start: 20051012, end: 20051012
  3. DEXCHLORPHENIRAMINE MALEATE [Concomitant]
     Route: 051
     Dates: start: 20051016, end: 20051016
  4. DEXCHLORPHENIRAMINE MALEATE [Concomitant]
     Route: 051
     Dates: start: 20051018, end: 20051018
  5. DEXCHLORPHENIRAMINE MALEATE [Concomitant]
     Route: 051
     Dates: start: 20051020, end: 20051020
  6. MYCOPHENOLATE MOFETIL [Concomitant]
     Route: 048
     Dates: start: 20051012, end: 20051021
  7. MYCOPHENOLATE MOFETIL [Concomitant]
     Route: 048
     Dates: start: 20051026
  8. NOROXIN [Suspect]
     Indication: URINARY TRACT INFECTION
     Route: 048
     Dates: start: 20051025, end: 20051025
  9. ANTILYMPHOCYTE IMMUNOGLOBULIN [Suspect]
     Indication: RENAL TRANSPLANT
     Route: 042
     Dates: start: 20051012, end: 20051012
  10. ANTILYMPHOCYTE IMMUNOGLOBULIN [Suspect]
     Route: 042
     Dates: start: 20051016, end: 20051016
  11. ANTILYMPHOCYTE IMMUNOGLOBULIN [Suspect]
     Route: 042
     Dates: start: 20051018, end: 20051018
  12. ANTILYMPHOCYTE IMMUNOGLOBULIN [Suspect]
     Route: 048
     Dates: start: 20051020, end: 20051020
  13. PREDNISONE [Concomitant]
     Indication: PROPHYLAXIS AGAINST TRANSPLANT REJECTION
     Route: 048
     Dates: start: 20051013, end: 20051019
  14. PREDNISONE [Concomitant]
     Route: 048
     Dates: start: 20051020, end: 20051025
  15. PREDNISONE [Concomitant]
     Route: 048
     Dates: start: 20051026
  16. TACROLIMUS [Concomitant]
     Route: 048
     Dates: start: 20051019, end: 20051025

REACTIONS (2)
  - SERUM SICKNESS [None]
  - URINARY TRACT INFECTION [None]
